FAERS Safety Report 12310165 (Version 3)
Quarter: 2019Q1

REPORT INFORMATION
  Report Type: Spontaneous
  Country: US (occurrence: US)
  Receive Date: 20160427
  Receipt Date: 20190102
  Transmission Date: 20190417
  Serious: Yes (Other)
  Sender: FDA-Public Use
  Company Number: US-PFIZER INC-2016216825

PATIENT
  Age: 36 Year
  Sex: Male
  Weight: 76 kg

DRUGS (15)
  1. RAPAMUNE [Suspect]
     Active Substance: SIROLIMUS
     Dosage: 1.5 MG, 1X/DAY (ONE IS 1MG AND ONE IS 0.5MG TABLETS)
     Route: 048
  2. ASPIRIN. [Concomitant]
     Active Substance: ASPIRIN
     Dosage: 81 MG, DAILY
     Route: 048
     Dates: start: 20090319
  3. CLINDAMYCIN. [Concomitant]
     Active Substance: CLINDAMYCIN
     Dosage: 600 MG, 1 HOUR PRIOR DENTAL WORK
     Dates: start: 20070806
  4. LIPITOR [Concomitant]
     Active Substance: ATORVASTATIN CALCIUM
     Dosage: 40 MG, DAILY
     Route: 048
     Dates: start: 20140310
  5. CARDIZEM CD [Concomitant]
     Active Substance: DILTIAZEM HYDROCHLORIDE
     Dosage: 120 MG, UNK
  6. DILTIAZEM. [Concomitant]
     Active Substance: DILTIAZEM
     Dosage: 120 MG, DAILY
     Route: 048
     Dates: start: 20150415
  7. LOVAZA [Concomitant]
     Active Substance: OMEGA-3-ACID ETHYL ESTERS
     Dosage: 2000 MG, 2X/DAY
     Route: 048
     Dates: start: 20100318
  8. MAGNESIUM OXIDE. [Concomitant]
     Active Substance: MAGNESIUM OXIDE
     Dosage: 800 MG, 3X/DAY
     Route: 048
     Dates: start: 20100329
  9. PLAVIX [Concomitant]
     Active Substance: CLOPIDOGREL BISULFATE
     Dosage: 75 MG, DAILY
     Route: 048
     Dates: start: 20120601
  10. ALTACE [Concomitant]
     Active Substance: RAMIPRIL
     Dosage: 20 MG, 1X/DAY (AT BEDTIME)
     Route: 048
     Dates: start: 20141020
  11. ALTACE [Concomitant]
     Active Substance: RAMIPRIL
     Dosage: 20 MG, DAILY (10MG CAPSULE, 2 CAPSULES BY MOUTH DAILY)
     Route: 048
  12. RAPAMUNE [Suspect]
     Active Substance: SIROLIMUS
     Indication: PROPHYLAXIS AGAINST TRANSPLANT REJECTION
     Dosage: 2 MG, DAILY (1 MG, 2 CAPSULES PER DAY)
     Route: 048
     Dates: start: 2004, end: 201601
  13. CELLCEPT [Concomitant]
     Active Substance: MYCOPHENOLATE MOFETIL\MYCOPHENOLATE MOFETIL HYDROCHLORIDE
     Indication: TRANSPLANT REJECTION
     Dosage: 1500 MG, 2X/DAY
     Route: 048
     Dates: start: 20040422
  14. RAPAMUNE [Suspect]
     Active Substance: SIROLIMUS
     Dosage: 2 MG, DAILY (1 MG, 2 CAPSULES PER DAY)
     Route: 048
  15. MMF [Concomitant]
     Active Substance: MYCOPHENOLATE MOFETIL
     Dosage: 1500 MG, 3X/DAY (500MG, 3 TABLETS BY MOUTH TWO TIMES DAILY)
     Route: 048

REACTIONS (12)
  - Product dose omission [Unknown]
  - Chest pain [Unknown]
  - Liver function test abnormal [Unknown]
  - Upper respiratory tract infection [Unknown]
  - Headache [Unknown]
  - Dyspnoea [Unknown]
  - Appendicitis [Unknown]
  - Abdominal pain upper [Unknown]
  - Hypertension [Not Recovered/Not Resolved]
  - Influenza [Unknown]
  - Product use in unapproved indication [Unknown]
  - Gastrooesophageal reflux disease [Not Recovered/Not Resolved]

NARRATIVE: CASE EVENT DATE: 20080724
